FAERS Safety Report 9735907 (Version 1)
Quarter: 2013Q4

REPORT INFORMATION
  Report Type: Spontaneous
  Country: US (occurrence: None)
  Receive Date: 20131205
  Receipt Date: 20131205
  Transmission Date: 20140711
  Serious: Yes (Other)
  Sender: FDA-Public Use
  Company Number: None

PATIENT
  Age: 65 Year
  Sex: Female

DRUGS (1)
  1. LIVALO 2MG KOWA/ LILLY [Suspect]
     Indication: HYPERLIPIDAEMIA
     Route: 048
     Dates: start: 20131017, end: 20131201

REACTIONS (2)
  - Mood altered [None]
  - Nightmare [None]
